FAERS Safety Report 8784649 (Version 1)
Quarter: 2012Q4

REPORT INFORMATION
  Report Type: Spontaneous
  Country: KR (occurrence: None)
  Receive Date: 20120831
  Receipt Date: 20120831
  Transmission Date: 20130627
  Serious: Yes (Hospitalization)
  Sender: FDA-Public Use
  Company Number: 2012P1054999

PATIENT
  Age: 22 Year
  Sex: Male

DRUGS (3)
  1. CEFOTAXIME [Suspect]
     Indication: ACUTE CHOLECYSTITIS
  2. METRONIDAZOLE [Suspect]
     Indication: ACUTE CHOLECYSTITIS
  3. OSELTAMIVIR [Suspect]
     Indication: SWINE INFLUENZA

REACTIONS (2)
  - Hepatitis cholestatic [None]
  - Drug reaction with eosinophilia and systemic symptoms [None]
